FAERS Safety Report 20851024 (Version 1)
Quarter: 2022Q2

REPORT INFORMATION
  Report Type: Spontaneous
  Country: DE (occurrence: DE)
  Receive Date: 20220519
  Receipt Date: 20220519
  Transmission Date: 20220721
  Serious: Yes (Congenital Anomaly, Other)
  Sender: FDA-Public Use
  Company Number: None

PATIENT
  Age: 1 Day
  Sex: Female

DRUGS (1)
  1. CYTOTEC [Suspect]
     Active Substance: MISOPROSTOL
     Dosage: 3 X DIVIDED TABLETS
     Dates: start: 20071214, end: 20071214

REACTIONS (2)
  - Foetal exposure during delivery [Unknown]
  - Intellectual disability [Unknown]

NARRATIVE: CASE EVENT DATE: 20071214
